FAERS Safety Report 8602152-6 (Version None)
Quarter: 2012Q3

REPORT INFORMATION
  Report Type: 
  Country: None (occurrence: None)
  Receive Date: 20120817
  Receipt Date: 20120815
  Transmission Date: 20120928
  Serious: Yes (Death, Hospitalization)
  Sender: FDA-Public Use
  Company Number: JP-GENZYME-THYM-1002867

PATIENT
  Sex: Female
  Weight: 13 kg

DRUGS (12)
  1. THYMOGLOBULIN [Suspect]
     Indication: APLASTIC ANAEMIA
  2. FLUCONAZOLE [Concomitant]
     Indication: PROPHYLAXIS
     Dosage: UNK
     Route: 065
     Dates: start: 20100610, end: 20111030
  3. ACYCLOVIR [Concomitant]
     Indication: PROPHYLAXIS
     Dosage: UNK
     Route: 065
     Dates: start: 20110410, end: 20110704
  4. SULFAMETHOPRIM [Concomitant]
     Indication: PROPHYLAXIS
     Dosage: UNK
     Route: 065
     Dates: start: 20101027, end: 20110410
  5. CYCLOPHOSPHAMIDE [Concomitant]
     Indication: APLASTIC ANAEMIA
     Dosage: UNK
     Route: 065
     Dates: start: 20110415, end: 20110418
  6. PLATELETS [Concomitant]
     Indication: APLASTIC ANAEMIA
     Dosage: UNK
     Route: 065
     Dates: start: 20110514, end: 20111028
  7. THYMOGLOBULIN [Suspect]
     Indication: BONE MARROW CONDITIONING REGIMEN
     Dosage: 33 MG, QD
     Route: 042
     Dates: start: 20110415, end: 20110418
  8. FLUDARA [Suspect]
     Indication: APLASTIC ANAEMIA
     Dosage: 15 MG/M2, QD (4 DAYS); INJECTION
     Route: 065
     Dates: start: 20110415, end: 20110418
  9. HYDROXYZINE PAMOATE [Concomitant]
     Indication: PREMEDICATION
     Dosage: UNK
     Route: 065
     Dates: start: 20110415, end: 20110418
  10. HUMAN RED BLOOD CELLS [Concomitant]
     Indication: APLASTIC ANAEMIA
     Dosage: UNK
     Route: 065
     Dates: start: 20110413, end: 20111030
  11. CYCLOSPORINE [Concomitant]
     Indication: APLASTIC ANAEMIA
     Dosage: UNK
     Route: 065
     Dates: start: 20100607, end: 20110408
  12. METHYLPREDNISOLONE SODIUM SUCCINATE [Concomitant]
     Indication: PREMEDICATION
     Dosage: UNK
     Route: 065
     Dates: start: 20110415, end: 20110428

REACTIONS (10)
  - PNEUMONIA [None]
  - PULMONARY HAEMORRHAGE [None]
  - PYREXIA [None]
  - STAPHYLOCOCCAL SEPSIS [None]
  - EPSTEIN-BARR VIRUS INFECTION [None]
  - CYTOMEGALOVIRUS TEST POSITIVE [None]
  - ESCHERICHIA URINARY TRACT INFECTION [None]
  - VOMITING [None]
  - ACUTE RESPIRATORY DISTRESS SYNDROME [None]
  - BACTERIAL INFECTION [None]
